FAERS Safety Report 9985353 (Version 1)
Quarter: 2014Q1

REPORT INFORMATION
  Report Type: Report from Study
  Country: US (occurrence: US)
  Receive Date: 20140307
  Receipt Date: 20140307
  Transmission Date: 20141002
  Serious: No
  Sender: FDA-Public Use
  Company Number: US-ABBVIE-13P-163-1184969-00

PATIENT
  Age: 58 Year
  Sex: Male

DRUGS (9)
  1. HUMIRA [Suspect]
     Indication: CROHN^S DISEASE
     Dates: start: 20131011
  2. ENTOCORT [Concomitant]
     Indication: PRODUCT USED FOR UNKNOWN INDICATION
     Dosage: TAPERING DOSE
     Dates: start: 2003
  3. ENTOCORT [Concomitant]
     Dosage: TAPERING DOSE
     Dates: start: 2003
  4. METFORMIN ER [Concomitant]
     Indication: DIABETES MELLITUS
  5. VASOTEC [Concomitant]
     Indication: HYPERTENSION
  6. LIPITOR [Concomitant]
     Indication: BLOOD CHOLESTEROL INCREASED
     Route: 048
  7. SYNTHROID [Concomitant]
     Indication: THYROID DISORDER
  8. HYDROCORTISONE [Concomitant]
     Indication: ADRENAL DISORDER
     Dosage: 1 TABLET IN THE MORNING AND 1/2 TABLET IN THE EVENING
  9. GLYBURIDE [Concomitant]
     Indication: DIABETES MELLITUS
     Route: 048

REACTIONS (1)
  - Inappropriate schedule of drug administration [Unknown]
